FAERS Safety Report 20737806 (Version 1)
Quarter: 2022Q2

REPORT INFORMATION
  Report Type: Spontaneous
  Country: CN (occurrence: CN)
  Receive Date: 20220422
  Receipt Date: 20220422
  Transmission Date: 20220720
  Serious: Yes (Disabling, Other)
  Sender: FDA-Public Use
  Company Number: CN-009507513-2204CHN005802

PATIENT
  Age: 47 Year
  Sex: Male
  Weight: 50 kg

DRUGS (2)
  1. CILASTATIN SODIUM\IMIPENEM [Suspect]
     Active Substance: CILASTATIN SODIUM\IMIPENEM
     Indication: Sepsis
     Dosage: 0.5 G, Q6H
     Route: 041
     Dates: start: 20220402, end: 20220405
  2. SODIUM CHLORIDE [Concomitant]
     Active Substance: SODIUM CHLORIDE
     Indication: Sepsis
     Dosage: 100 ML, Q6H
     Route: 041

REACTIONS (5)
  - Loss of consciousness [Recovering/Resolving]
  - Muscle twitching [Recovering/Resolving]
  - Foaming at mouth [Recovering/Resolving]
  - Cyanosis [Unknown]
  - Condition aggravated [Unknown]

NARRATIVE: CASE EVENT DATE: 20220401
